FAERS Safety Report 6655739-4 (Version None)
Quarter: 2010Q1

REPORT INFORMATION
  Report Type: 
  Country: None (occurrence: None)
  Receive Date: 20100329
  Receipt Date: 20100317
  Transmission Date: 20100710
  Serious: Yes (Hospitalization)
  Sender: FDA-Public Use
  Company Number: NO-GENENTECH-299524

PATIENT
  Age: 71 Year
  Sex: Male

DRUGS (3)
  1. MABTHERA [Suspect]
     Indication: CHRONIC LYMPHOCYTIC LEUKAEMIA
     Dosage: 750 MG, 1/MONTH
     Route: 042
     Dates: start: 20100106
  2. FLUDARABINE PHOSPHATE [Concomitant]
     Indication: CHRONIC LYMPHOCYTIC LEUKAEMIA
     Dosage: UNK
     Route: 048
  3. SENDOXAN [Concomitant]
     Indication: CHRONIC LYMPHOCYTIC LEUKAEMIA
     Dosage: UNK
     Route: 048

REACTIONS (1)
  - PLEURAL EFFUSION [None]
